FAERS Safety Report 12014058 (Version 1)
Quarter: 2016Q1

REPORT INFORMATION
  Report Type: Spontaneous
  Country: FI (occurrence: FI)
  Receive Date: 20160205
  Receipt Date: 20160205
  Transmission Date: 20160526
  Serious: Yes (Other)
  Sender: FDA-Public Use
  Company Number: FI-BAYER-2015-429954

PATIENT
  Age: 32 Year
  Sex: Female

DRUGS (1)
  1. JAYDESS [Suspect]
     Active Substance: LEVONORGESTREL
     Dosage: 14 MCG/24HR, CONT
     Route: 015
     Dates: start: 201504, end: 20151121

REACTIONS (6)
  - Haemorrhage in pregnancy [Recovered/Resolved]
  - Device dislocation [None]
  - Medication error [None]
  - Retained placenta or membranes [None]
  - Pregnancy with contraceptive device [None]
  - Procedural haemorrhage [None]

NARRATIVE: CASE EVENT DATE: 2015
